FAERS Safety Report 21987011 (Version 2)
Quarter: 2023Q1

REPORT INFORMATION
  Report Type: Report from Study
  Country: MX (occurrence: None)
  Receive Date: 20230213
  Receipt Date: 20230313
  Transmission Date: 20230418
  Serious: Yes (Death)
  Sender: FDA-Public Use
  Company Number: MX-ROCHE-3283768

PATIENT
  Age: 61 Year
  Sex: Female
  Weight: 49.7 kg

DRUGS (14)
  1. POLATUZUMAB VEDOTIN [Suspect]
     Active Substance: POLATUZUMAB VEDOTIN
     Indication: B-cell lymphoma
     Dosage: THE LAST CYCLE THAT POLATUZUMAB WAS ADMINISTERED WAS CYCLE 6 (17-JAN-2023)
     Route: 042
     Dates: start: 20221006
  2. MOSUNETUZUMAB [Suspect]
     Active Substance: MOSUNETUZUMAB
     Indication: B-cell lymphoma
     Dosage: FREQUENCY: ON DAYS 1, 8, AND 15 OF CYCLE 1, AND THEREAFTER ON DAY 1 OF CYCLES 2-8 AS PER PROTOCOL
     Route: 058
     Dates: start: 20221006
  3. APIXABAN [Concomitant]
     Active Substance: APIXABAN
     Indication: Deep vein thrombosis
     Route: 048
     Dates: start: 20221004
  4. CAPTOPRIL [Concomitant]
     Active Substance: CAPTOPRIL
     Indication: Hypertension
     Route: 048
     Dates: start: 19900101
  5. ESOMEPRAZOLE [Concomitant]
     Active Substance: ESOMEPRAZOLE
     Indication: Gastritis
     Route: 048
     Dates: start: 20221011
  6. ONDANSETRON [Concomitant]
     Active Substance: ONDANSETRON
     Indication: Nausea
     Route: 048
     Dates: start: 20221105
  7. ITOPRIDE [Concomitant]
     Active Substance: ITOPRIDE
     Indication: Gastrointestinal haemorrhage
     Route: 048
     Dates: start: 20221219
  8. SUCRALFATE [Concomitant]
     Active Substance: SUCRALFATE
     Indication: Gastrointestinal haemorrhage
     Route: 048
     Dates: start: 20221219
  9. GLYCERIN\MINERAL OIL\PETROLATUM [Concomitant]
     Active Substance: GLYCERIN\MINERAL OIL\PETROLATUM
     Indication: Dry skin
     Route: 061
     Dates: start: 20221105
  10. CETAPHIL (MEXICO) [Concomitant]
     Indication: Dry skin
     Route: 061
     Dates: start: 20221105
  11. NISTATIN [Concomitant]
     Active Substance: NYSTATIN
     Indication: Oral candidiasis
     Route: 048
     Dates: start: 20230117
  12. ACYCLOVIR [Concomitant]
     Active Substance: ACYCLOVIR
     Indication: Herpes virus infection
     Route: 048
     Dates: start: 20230117
  13. TRAMADOL [Concomitant]
     Active Substance: TRAMADOL
     Route: 048
     Dates: start: 20230208, end: 20230208
  14. ACETAMINOPHEN [Concomitant]
     Active Substance: ACETAMINOPHEN
     Route: 048
     Dates: start: 20230208, end: 20230208

REACTIONS (1)
  - Cardiac arrest [Fatal]

NARRATIVE: CASE EVENT DATE: 20230208
